FAERS Safety Report 10377477 (Version 1)
Quarter: 2014Q3

REPORT INFORMATION
  Report Type: Spontaneous
  Country: JP (occurrence: JP)
  Receive Date: 20140812
  Receipt Date: 20140812
  Transmission Date: 20150326
  Serious: No
  Sender: FDA-Public Use
  Company Number: PHHY2014JP098551

PATIENT
  Age: 76 Year
  Sex: Female

DRUGS (3)
  1. DASATINIB [Suspect]
     Active Substance: DASATINIB
     Dosage: 50 MG
  2. TASIGNA [Suspect]
     Active Substance: NILOTINIB
     Dosage: 300 MG DAILY
  3. TASIGNA [Suspect]
     Active Substance: NILOTINIB
     Dosage: 200 MG DAILY

REACTIONS (2)
  - Liver disorder [Unknown]
  - Pleural effusion [Unknown]
